FAERS Safety Report 8556884-9 (Version None)
Quarter: 2012Q3

REPORT INFORMATION
  Report Type: 
  Country: None (occurrence: None)
  Receive Date: 20120801
  Receipt Date: 20120727
  Transmission Date: 20120928
  Serious: No
  Sender: FDA-Public Use
  Company Number: US-PFIZER INC-2012182693

PATIENT
  Sex: Male

DRUGS (1)
  1. SUTENT [Suspect]

REACTIONS (1)
  - VOMITING [None]
